FAERS Safety Report 7647588-5 (Version None)
Quarter: 2011Q3

REPORT INFORMATION
  Report Type: 
  Country: None (occurrence: None)
  Receive Date: 20110801
  Receipt Date: 20110726
  Transmission Date: 20111222
  Serious: Yes (Life-Threatening, Hospitalization)
  Sender: FDA-Public Use
  Company Number: FR-PFIZER INC-2011169266

PATIENT
  Age: 3 Year
  Sex: Female
  Weight: 15 kg

DRUGS (2)
  1. ACETAMINOPHEN [Concomitant]
     Dosage: 15MG/KG = 225MG (1DF EVERY 6 HOURS)
     Dates: start: 20110624, end: 20110625
  2. PEDIATRIC ADVIL [Suspect]
     Dosage: 7.5 MG/KG = 112,5MG. 1DF AT 2 A.M AND AT 9 A.M
     Dates: start: 20110625, end: 20110625

REACTIONS (5)
  - FEBRILE CONVULSION [None]
  - HYPERTHERMIA [None]
  - CONDITION AGGRAVATED [None]
  - FASCIITIS [None]
  - VARICELLA [None]
